FAERS Safety Report 8115406-7 (Version None)
Quarter: 2012Q1

REPORT INFORMATION
  Report Type: 
  Country: None (occurrence: None)
  Receive Date: 20120118
  Receipt Date: 20120112
  Transmission Date: 20120608
  Serious: Yes (Other)
  Sender: FDA-Public Use
  Company Number: 2011028755

PATIENT
  Age: 56 Year
  Sex: Female
  Weight: 72.5755 kg

DRUGS (15)
  1. ZEMAIRA [Suspect]
     Indication: ALPHA-1 ANTI-TRYPSIN DEFICIENCY
     Dosage: SEE IMAGE
     Route: 042
     Dates: start: 20090801
  2. ZEMAIRA [Suspect]
     Indication: CHRONIC OBSTRUCTIVE PULMONARY DISEASE
     Dosage: SEE IMAGE
     Route: 042
     Dates: start: 20090801
  3. SINGULAIR [Concomitant]
  4. PRO AIR (PROCATEROL HYDROCHLORIDE) [Concomitant]
  5. ADVAIR HFA [Concomitant]
  6. PRINIVIL [Concomitant]
  7. MUCINEX [Concomitant]
  8. ZEMAIRA [Suspect]
  9. LEXAPRO [Concomitant]
  10. SPIRIVA [Concomitant]
  11. ACTIVELLA (OESTRANORM) [Concomitant]
  12. ESTRACE [Concomitant]
  13. ZEMAIRA [Suspect]
  14. LISINOPRIL [Concomitant]
  15. ZEMAIRA [Suspect]

REACTIONS (2)
  - SINUSITIS [None]
  - UPPER RESPIRATORY TRACT INFECTION [None]
